FAERS Safety Report 25249074 (Version 1)
Quarter: 2025Q2

REPORT INFORMATION
  Report Type: Spontaneous
  Country: US (occurrence: US)
  Receive Date: 20250429
  Receipt Date: 20250429
  Transmission Date: 20250717
  Serious: Yes (Other)
  Sender: ALEMBIC
  Company Number: US-ALEMBIC PHARMACUETICALS LIMITED-2025SCAL000406

PATIENT

DRUGS (1)
  1. OLMESARTAN MEDOXOMIL [Suspect]
     Active Substance: OLMESARTAN MEDOXOMIL
     Indication: Hypertension
     Route: 065

REACTIONS (12)
  - Gastrointestinal disorder [Recovering/Resolving]
  - Ileal ulcer [Recovering/Resolving]
  - Duodenal ulcer [Recovering/Resolving]
  - Diarrhoea [Recovering/Resolving]
  - Abdominal pain [Recovering/Resolving]
  - Weight decreased [Recovering/Resolving]
  - Faecal calprotectin increased [Recovering/Resolving]
  - C-reactive protein increased [Recovering/Resolving]
  - Duodenitis [Recovering/Resolving]
  - Intestinal villi atrophy [Recovered/Resolved]
  - Duodenal stenosis [Recovering/Resolving]
  - Enteritis [Recovered/Resolved]
